FAERS Safety Report 6032026-9 (Version None)
Quarter: 2009Q1

REPORT INFORMATION
  Report Type: 
  Country: None (occurrence: None)
  Receive Date: 20090108
  Receipt Date: 20090105
  Transmission Date: 20090719
  Serious: Yes (Disabling, Other)
  Sender: FDA-Public Use
  Company Number: PHHY2009CA00548

PATIENT
  Sex: Female

DRUGS (10)
  1. ACLASTA [Suspect]
     Indication: OSTEOPOROSIS
     Dosage: 5 MG YEARLY
     Route: 042
     Dates: start: 20081212
  2. ALTACE [Concomitant]
  3. HYDROCHLOROTHIAZIDE [Concomitant]
  4. LEVOTHYROXINE SODIUM [Concomitant]
  5. MELOXICAM [Concomitant]
  6. METOPROLOL TARTRATE [Concomitant]
  7. PREDNISONE [Concomitant]
  8. PLAVIX [Concomitant]
  9. ROCALTROL [Concomitant]
  10. CALCIUM [Concomitant]

REACTIONS (5)
  - ARTHRITIS [None]
  - CEREBROVASCULAR ACCIDENT [None]
  - FALL [None]
  - HYPERTENSION [None]
  - MUSCULAR WEAKNESS [None]
